FAERS Safety Report 20489436 (Version 1)
Quarter: 2022Q1

REPORT INFORMATION
  Report Type: Spontaneous
  Country: US (occurrence: None)
  Receive Date: 20220217
  Receipt Date: 20220217
  Transmission Date: 20220424
  Serious: Yes (Disabling)
  Sender: FDA-Public Use
  Company Number: None

PATIENT
  Age: 73 Year
  Sex: Female
  Weight: 112.5 kg

DRUGS (1)
  1. BUPROPION [Suspect]
     Active Substance: BUPROPION
     Indication: Affective disorder
     Dosage: OTHER QUANTITY : 1 TABLET(S);?OTHER FREQUENCY : EVERY OTHER DAY;?
     Route: 048
     Dates: start: 20010101

REACTIONS (4)
  - Anxiety [None]
  - Aphasia [None]
  - Impaired work ability [None]
  - Dementia [None]

NARRATIVE: CASE EVENT DATE: 20220217
